FAERS Safety Report 21552913 (Version 3)
Quarter: 2022Q4

REPORT INFORMATION
  Report Type: Spontaneous
  Country: US (occurrence: None)
  Receive Date: 20221104
  Receipt Date: 20221205
  Transmission Date: 20230113
  Serious: No
  Sender: FDA-Public Use
  Company Number: US-Inventia-000239

PATIENT
  Age: 85 Year
  Sex: Female

DRUGS (1)
  1. TELMISARTAN [Suspect]
     Active Substance: TELMISARTAN
     Indication: Hypertension
     Dosage: 80 MG TABLETS (ONE TABLET IN THE EARLY EVENING), PATIENT CONSUMED APPROXIMATELY 45 TABLETS

REACTIONS (1)
  - Product physical issue [Unknown]
